FAERS Safety Report 6746447-X (Version None)
Quarter: 2010Q2

REPORT INFORMATION
  Report Type: 
  Country: None (occurrence: None)
  Receive Date: 20100528
  Receipt Date: 20100521
  Transmission Date: 20101027
  Serious: Yes (Other)
  Sender: FDA-Public Use
  Company Number: BR-ROCHE-704711

PATIENT
  Sex: Male
  Weight: 65 kg

DRUGS (2)
  1. ROACUTAN [Suspect]
     Route: 048
     Dates: start: 20100101
  2. DIPYRONE [Concomitant]
     Indication: HEADACHE

REACTIONS (3)
  - DEPRESSED MOOD [None]
  - NERVOUSNESS [None]
  - SUICIDAL IDEATION [None]
